FAERS Safety Report 17661022 (Version 2)
Quarter: 2020Q2

REPORT INFORMATION
  Report Type: Spontaneous
  Country: US (occurrence: US)
  Receive Date: 20200413
  Receipt Date: 20200422
  Transmission Date: 20200713
  Serious: Yes (Hospitalization)
  Sender: FDA-Public Use
  Company Number: US-VERTEX PHARMACEUTICALS-2020-008416

PATIENT
  Age: 49 Year
  Sex: Male

DRUGS (7)
  1. DULERA [Concomitant]
     Active Substance: FORMOTEROL FUMARATE DIHYDRATE\MOMETASONE FUROATE
  2. MOXIFLOXACIN. [Concomitant]
     Active Substance: MOXIFLOXACIN
  3. PROAIR [FLUTICASONE PROPIONATE] [Concomitant]
     Active Substance: FLUTICASONE PROPIONATE
  4. METHYPRED [Concomitant]
  5. COLISTIMETHATE [COLISTIMETHATE SODIUM] [Concomitant]
     Active Substance: COLISTIMETHATE SODIUM
  6. ZENPEP [Concomitant]
     Active Substance: PANCRELIPASE AMYLASE\PANCRELIPASE LIPASE\PANCRELIPASE PROTEASE
  7. TRIKAFTA [Suspect]
     Active Substance: ELEXACAFTOR\IVACAFTOR\TEZACAFTOR
     Indication: CYSTIC FIBROSIS
     Dosage: 2 TABS (100MG ELEXACAFTOR/50MG TEZACAFTOR/75MG IVACAFTOR) AM AND 1 TAB (150MG IVACAFTOR) PM
     Route: 048
     Dates: start: 20191105

REACTIONS (5)
  - Chest discomfort [Recovered/Resolved]
  - Product dose omission [Recovered/Resolved]
  - Lung disorder [Recovered/Resolved]
  - Distal intestinal obstruction syndrome [Recovering/Resolving]
  - Sputum abnormal [Not Recovered/Not Resolved]

NARRATIVE: CASE EVENT DATE: 202003
